FAERS Safety Report 4366223-5 (Version None)
Quarter: 2004Q2

REPORT INFORMATION
  Report Type: 
  Country: None (occurrence: None)
  Receive Date: 20040527
  Receipt Date: 20040409
  Transmission Date: 20050107
  Serious: No
  Sender: FDA-Public Use
  Company Number: US-BRISTOL-MYERS SQUIBB COMPANY-12557377

PATIENT
  Age: 56 Year
  Sex: Female
  Weight: 68 kg

DRUGS (1)
  1. DEFINITY [Suspect]
     Indication: CARDIAC STRESS TEST
     Route: 042
     Dates: start: 20040326

REACTIONS (2)
  - BACK PAIN [None]
  - PAIN IN EXTREMITY [None]
